FAERS Safety Report 13059862 (Version 2)
Quarter: 2016Q4

REPORT INFORMATION
  Report Type: Spontaneous
  Country: JP (occurrence: JP)
  Receive Date: 20161223
  Receipt Date: 20161229
  Transmission Date: 20170207
  Serious: Yes (Other)
  Sender: FDA-Public Use
  Company Number: JP-ELI_LILLY_AND_COMPANY-JP201612005545

PATIENT
  Age: 70 Year
  Sex: Male

DRUGS (2)
  1. PACLITAXEL ALBUMIN [Concomitant]
     Active Substance: PACLITAXEL
     Indication: ADENOCARCINOMA PANCREAS
  2. GEMZAR [Suspect]
     Active Substance: GEMCITABINE HYDROCHLORIDE
     Indication: ADENOCARCINOMA PANCREAS
     Route: 042

REACTIONS (2)
  - Gastric fistula [Recovered/Resolved]
  - Cerebral infarction [Not Recovered/Not Resolved]
